FAERS Safety Report 7068256-7 (Version None)
Quarter: 2010Q4

REPORT INFORMATION
  Report Type: 
  Country: None (occurrence: None)
  Receive Date: 20101028
  Receipt Date: 20101019
  Transmission Date: 20110411
  Serious: Yes (Hospitalization)
  Sender: FDA-Public Use
  Company Number: US-JNJCH-2010024346

PATIENT
  Age: 13 Year
  Sex: Male

DRUGS (3)
  1. ASPIRIN [Suspect]
     Indication: INTENTIONAL OVERDOSE
     Route: 048
  2. DIPHENHYDRAMINE CITRATE AND IBUPROFEN [Suspect]
     Indication: INTENTIONAL OVERDOSE
     Dosage: TEXT:UNKNOWN
     Route: 048
  3. LOSARTAN [Suspect]
     Indication: INTENTIONAL OVERDOSE
     Dosage: TEXT:UNKNOWN
     Route: 048

REACTIONS (2)
  - INTENTIONAL OVERDOSE [None]
  - THERAPEUTIC AGENT TOXICITY [None]
